FAERS Safety Report 15618222 (Version 1)
Quarter: 2018Q4

REPORT INFORMATION
  Report Type: Spontaneous
  Country: JP (occurrence: JP)
  Receive Date: 20181114
  Receipt Date: 20181114
  Transmission Date: 20190205
  Serious: Yes (Other)
  Sender: FDA-Public Use
  Company Number: JP-FRESENIUS KABI-FK201811655

PATIENT
  Age: 44 Year
  Sex: Female

DRUGS (18)
  1. RAMELTEON [Suspect]
     Active Substance: RAMELTEON
     Indication: LIMBIC ENCEPHALITIS
     Dosage: 8 MG/DAY
     Route: 065
  2. SUVOREXANT. [Suspect]
     Active Substance: SUVOREXANT
     Indication: LIMBIC ENCEPHALITIS
     Dosage: 20 MG/DAY
     Route: 065
  3. PROPOFOL (MANUFACTURER UNKNOWN) [Suspect]
     Active Substance: PROPOFOL
     Indication: LIMBIC ENCEPHALITIS
     Dosage: 100-150 MG/H
     Route: 065
  4. EDOXABAN [Suspect]
     Active Substance: EDOXABAN TOSYLATE
     Indication: LIMBIC ENCEPHALITIS
     Dosage: 30 MG/DAY
     Route: 065
  5. HALOPERIDOL INJECTION (MANUFACTURER UNKNOWN) [Suspect]
     Active Substance: HALOPERIDOL LACTATE
     Indication: LIMBIC ENCEPHALITIS
     Dosage: 5-10 MG/DAY
     Route: 065
  6. QUETIAPINE. [Suspect]
     Active Substance: QUETIAPINE
     Indication: LIMBIC ENCEPHALITIS
     Dosage: 12,5-25 MG/DAY
     Route: 065
  7. METHYLPREDNISOLONE (MANUFACTURER UNKNOWN) [Suspect]
     Active Substance: METHYLPREDNISOLONE
     Indication: LIMBIC ENCEPHALITIS
     Dosage: 1G/DAY FOR 3 DAYS, EVERY WEEK, FOR 4 TIMES
     Route: 065
  8. IMMUNOGLOBULINS NOS [Suspect]
     Active Substance: IMMUNE GLOBULIN NOS
     Indication: LIMBIC ENCEPHALITIS
     Dosage: 0,4 G/KG/DAY FOR 5 DAYS
     Route: 065
  9. BROTIZOLAM [Suspect]
     Active Substance: BROTIZOLAM
     Indication: LIMBIC ENCEPHALITIS
     Dosage: 0,25 MG/DAY
     Route: 065
  10. LACOSAMIDE. [Suspect]
     Active Substance: LACOSAMIDE
     Indication: LIMBIC ENCEPHALITIS
     Dosage: 100 MG/DAY
     Route: 065
  11. FENTANYL. [Suspect]
     Active Substance: FENTANYL
     Indication: LIMBIC ENCEPHALITIS
     Dosage: 0,07 MG/H
     Route: 065
  12. MOSAPRIDE [Suspect]
     Active Substance: MOSAPRIDE
     Indication: LIMBIC ENCEPHALITIS
     Dosage: 15 MG/DAY
     Route: 065
  13. DEXMEDETOMIDINE (MANUFACTURER UNKNOWN) [Suspect]
     Active Substance: DEXMEDETOMIDINE
     Indication: LIMBIC ENCEPHALITIS
     Dosage: 0,5-0,7 MICROGRAMS/KG/H
     Route: 065
  14. LEVETIRACETAM (MANUFACTURER UNKNOWN) [Suspect]
     Active Substance: LEVETIRACETAM
     Indication: FOCAL DYSCOGNITIVE SEIZURES
     Dosage: 3000 MG/DAY
     Route: 065
  15. AMPICILLIN (MANUFACTURER UNKNOWN) (AMPICILLIN) (AMPICILLIN) [Suspect]
     Active Substance: AMPICILLIN
     Indication: LIMBIC ENCEPHALITIS
     Dosage: 3G/DAY
     Route: 065
  16. ACYCLOVIR SODIUM (MANUFACTURER UNKNOWN) [Suspect]
     Active Substance: ACYCLOVIR SODIUM
     Indication: MENINGOENCEPHALITIS HERPETIC
     Dosage: 10 MG/KG/DAY
     Route: 065
  17. ESOMEPRAZOLE. [Suspect]
     Active Substance: ESOMEPRAZOLE MAGNESIUM
     Indication: LIMBIC ENCEPHALITIS
     Dosage: 20 MG/DAY
     Route: 065
  18. LOXOPROFEN [Suspect]
     Active Substance: LOXOPROFEN
     Indication: LIMBIC ENCEPHALITIS
     Dosage: 60 MG/DAY
     Route: 065

REACTIONS (1)
  - Toxic epidermal necrolysis [Recovering/Resolving]
